FAERS Safety Report 6240735-1 (Version None)
Quarter: 2009Q2

REPORT INFORMATION
  Report Type: 
  Country: None (occurrence: None)
  Receive Date: 20090623
  Receipt Date: 20090402
  Transmission Date: 20091009
  Serious: No
  Sender: FDA-Public Use
  Company Number: US-ASTRAZENECA-2009UW05828

PATIENT
  Age: 60 Year
  Sex: Female

DRUGS (2)
  1. PULMICORT FLEXHALER [Suspect]
     Dosage: 2 PUFFS ONCE DAILY
     Route: 055
  2. PULMICORT FLEXHALER [Suspect]
     Dosage: 90 MCG  2 PUFFS IN AM AND 2 PUFFS IN PM  DAILY
     Route: 055

REACTIONS (3)
  - CHOKING [None]
  - CIRCUMSTANCE OR INFORMATION CAPABLE OF LEADING TO MEDICATION ERROR [None]
  - COUGH [None]
